FAERS Safety Report 21045024 (Version 2)
Quarter: 2022Q3

REPORT INFORMATION
  Report Type: Spontaneous
  Country: PL (occurrence: PL)
  Receive Date: 20220705
  Receipt Date: 20220711
  Transmission Date: 20221027
  Serious: Yes (Death, Other)
  Sender: FDA-Public Use
  Company Number: PL-002147023-NVSC2022PL147041

PATIENT

DRUGS (2)
  1. RUXOLITINIB [Suspect]
     Active Substance: RUXOLITINIB
     Indication: Myelofibrosis
     Dosage: UNK
     Route: 065
  2. RUXOLITINIB [Suspect]
     Active Substance: RUXOLITINIB
     Indication: Acute graft versus host disease

REACTIONS (5)
  - Acute respiratory failure [Fatal]
  - Pneumonia cytomegaloviral [Fatal]
  - Venoocclusive liver disease [Unknown]
  - Graft versus host disease in liver [Unknown]
  - Drug resistance [Unknown]
